FAERS Safety Report 5093197-4 (Version None)
Quarter: 2006Q3

REPORT INFORMATION
  Report Type: 
  Country: None (occurrence: None)
  Receive Date: 20060728
  Receipt Date: 20060330
  Transmission Date: 20061208
  Serious: Yes (Death)
  Sender: FDA-Public Use
  Company Number: COT_0497_2006

PATIENT
  Age: 68 Year
  Sex: Male
  Weight: 77.1115 kg

DRUGS (14)
  1. VENTAVIS [Suspect]
     Indication: PULMONARY HYPERTENSION
     Dosage: 5 MCG 6XD IH
     Dates: start: 20060323
  2. CITRACAL [Concomitant]
  3. BACTRIM [Concomitant]
  4. ZOLOFT [Concomitant]
  5. FOSAMAX [Concomitant]
  6. FLONASE [Concomitant]
  7. XANAX [Concomitant]
  8. PREDNISONE [Concomitant]
  9. ASPIRIN [Concomitant]
  10. TOPROL-XL [Concomitant]
  11. FLOMAX [Concomitant]
  12. ZESTRIL [Concomitant]
  13. ZETIA [Concomitant]
  14. OXYGEN [Concomitant]

REACTIONS (2)
  - CONDITION AGGRAVATED [None]
  - PULMONARY HYPERTENSION [None]
